FAERS Safety Report 15439802 (Version 2)
Quarter: 2018Q4

REPORT INFORMATION
  Report Type: Report from Study
  Country: JP (occurrence: JP)
  Receive Date: 20180928
  Receipt Date: 20181004
  Transmission Date: 20190204
  Serious: Yes (Death, Hospitalization, Other)
  Sender: FDA-Public Use
  Company Number: JP-009507513-1809JPN002325J

PATIENT
  Age: 67 Year
  Sex: Male
  Weight: 47 kg

DRUGS (12)
  1. FLUNITRAZEPAM [Concomitant]
     Active Substance: FLUNITRAZEPAM
     Dosage: 1 DF, QD
     Route: 048
  2. DENOTAS [Concomitant]
     Active Substance: CALCIUM CARBONATE\CHOLECALCIFEROL\MAGNESIUM CARBONATE
     Indication: TRANSITIONAL CELL CARCINOMA
     Dosage: 2 DF, QD
     Route: 048
  3. COCARL [Concomitant]
     Active Substance: ACETAMINOPHEN
     Indication: TRANSITIONAL CELL CARCINOMA
     Dosage: 400 MG, QID
     Route: 048
  4. LYRICA [Concomitant]
     Active Substance: PREGABALIN
     Indication: TRANSITIONAL CELL CARCINOMA
     Dosage: 1 DF, BID
     Route: 048
  5. CELECOX [Concomitant]
     Active Substance: CELECOXIB
     Indication: TRANSITIONAL CELL CARCINOMA
     Dosage: 2 DF, TID
     Route: 048
  6. MAGNESIUM OXIDE. [Concomitant]
     Active Substance: MAGNESIUM OXIDE
     Dosage: 2 DF, TID
     Route: 048
     Dates: start: 20180417
  7. KEYTRUDA [Suspect]
     Active Substance: PEMBROLIZUMAB
     Indication: TRANSITIONAL CELL CARCINOMA
     Dosage: 200 MG, Q3W
     Route: 041
     Dates: start: 20180323, end: 2018
  8. MARZULENE-S [Concomitant]
     Active Substance: SODIUM GUALENATE
     Dosage: 1 DF, TID
     Route: 048
  9. SENNOSIDE [Concomitant]
     Active Substance: SENNOSIDES
     Dosage: 2 DF, QD
     Route: 048
     Dates: start: 20180417
  10. TRAMADOL HYDROCHLORIDE. [Concomitant]
     Active Substance: TRAMADOL HYDROCHLORIDE
     Indication: TRANSITIONAL CELL CARCINOMA
     Dosage: 1 DF, QID
     Route: 048
  11. OXYCODONE [Concomitant]
     Active Substance: OXYCODONE
     Indication: TRANSITIONAL CELL CARCINOMA
     Dosage: 3 DF, BID
     Route: 048
     Dates: start: 20180301
  12. OXYCODONE [Concomitant]
     Active Substance: OXYCODONE
     Indication: TRANSITIONAL CELL CARCINOMA
     Dosage: 2 DF, QD
     Route: 048

REACTIONS (2)
  - Infection [Recovered/Resolved]
  - Malignant neoplasm progression [Fatal]

NARRATIVE: CASE EVENT DATE: 2018
